FAERS Safety Report 6968181-3 (Version None)
Quarter: 2010Q3

REPORT INFORMATION
  Report Type: 
  Country: None (occurrence: None)
  Receive Date: 20100901
  Receipt Date: 20100818
  Transmission Date: 20110219
  Serious: Yes (Death)
  Sender: FDA-Public Use
  Company Number: 2010S1000143

PATIENT
  Age: 38 Year
  Sex: Male

DRUGS (2)
  1. INOMAX [Suspect]
     Indication: OXYGEN SATURATION DECREASED
     Dosage: 80 PPM;CONT;INH
     Route: 055
     Dates: start: 20100815, end: 20100818
  2. INOMAX [Suspect]
     Indication: OXYGEN SATURATION DECREASED
     Dosage: 8- PPM;CONT;INH
     Route: 055
     Dates: start: 20100815, end: 20100818

REACTIONS (1)
  - OXYGEN SATURATION DECREASED [None]
